FAERS Safety Report 20532308 (Version 1)
Quarter: 2022Q1

REPORT INFORMATION
  Report Type: Spontaneous
  Country: US (occurrence: None)
  Receive Date: 20220228
  Receipt Date: 20220228
  Transmission Date: 20220423
  Serious: Yes (Other)
  Sender: FDA-Public Use
  Company Number: None

PATIENT
  Age: 70 Year
  Sex: Female
  Weight: 75.15 kg

DRUGS (5)
  1. OMEPRAZOLE [Suspect]
     Active Substance: OMEPRAZOLE
     Indication: Oesophagitis
     Dosage: OTHER QUANTITY : 1 CAPSULE(S);?
     Route: 048
     Dates: start: 20211007, end: 20211103
  2. OMEPRAZOLE [Suspect]
     Active Substance: OMEPRAZOLE
     Indication: Oesophageal stenosis
  3. FOSAMAX [Concomitant]
     Active Substance: ALENDRONATE SODIUM
  4. PEPCID [Concomitant]
     Active Substance: FAMOTIDINE
  5. FIBER SUPPLEMENTS [Concomitant]

REACTIONS (2)
  - Drug eruption [None]
  - Rash [None]

NARRATIVE: CASE EVENT DATE: 20211028
